FAERS Safety Report 5950182-5 (Version None)
Quarter: 2008Q4

REPORT INFORMATION
  Report Type: 
  Country: None (occurrence: None)
  Receive Date: 20081112
  Receipt Date: 20081103
  Transmission Date: 20090506
  Serious: Yes (Death, Hospitalization, Congenital Anomaly)
  Sender: FDA-Public Use
  Company Number: A0630322A

PATIENT
  Sex: Female

DRUGS (4)
  1. PAXIL CR [Suspect]
     Indication: DRUG USE FOR UNKNOWN INDICATION
     Dates: start: 20030804, end: 20040301
  2. NASONEX [Concomitant]
     Dates: start: 20040601, end: 20040601
  3. AMOXICILLIN [Concomitant]
     Dates: start: 20040801
  4. VITAMIN TAB [Concomitant]

REACTIONS (29)
  - ARTERIAL THROMBOSIS [None]
  - ATRIAL SEPTAL DEFECT [None]
  - BRADYCARDIA [None]
  - BRAIN OEDEMA [None]
  - CARDIAC ARREST [None]
  - COARCTATION OF THE AORTA [None]
  - CONGENITAL CARDIOVASCULAR ANOMALY [None]
  - DOUBLE OUTLET RIGHT VENTRICLE [None]
  - DRUG EXPOSURE DURING PREGNANCY [None]
  - DYSPNOEA [None]
  - ENDOCARDIAL FIBROSIS [None]
  - FEEDING DISORDER NEONATAL [None]
  - FLUID OVERLOAD [None]
  - HEPATOMEGALY [None]
  - HYDRONEPHROSIS [None]
  - HYPOPLASTIC LEFT HEART SYNDROME [None]
  - HYPOTENSION [None]
  - MITRAL VALVE INCOMPETENCE [None]
  - MYOCARDIAL INFARCTION [None]
  - NECROSIS [None]
  - NEONATAL DISORDER [None]
  - PAIN [None]
  - PATENT DUCTUS ARTERIOSUS [None]
  - PULMONARY CONGESTION [None]
  - RENAL FAILURE [None]
  - RESPIRATORY DISTRESS [None]
  - TURNER'S SYNDROME [None]
  - VENTRICULAR HYPOPLASIA [None]
  - VENTRICULAR SEPTAL DEFECT [None]
